FAERS Safety Report 14439509 (Version 1)
Quarter: 2018Q1

REPORT INFORMATION
  Report Type: Spontaneous
  Country: JP (occurrence: JP)
  Receive Date: 20180125
  Receipt Date: 20180125
  Transmission Date: 20180509
  Serious: Yes (Other)
  Sender: FDA-Public Use
  Company Number: JP-INCYTE CORPORATION-2018IN000523

PATIENT

DRUGS (1)
  1. JAKAVI [Suspect]
     Active Substance: RUXOLITINIB
     Indication: CHRONIC LEUKAEMIA
     Dosage: UNK
     Route: 048

REACTIONS (3)
  - Blood count abnormal [Unknown]
  - Product use in unapproved indication [Unknown]
  - Gelatinous transformation of the bone marrow [Unknown]
